FAERS Safety Report 16531020 (Version 1)
Quarter: 2019Q3

REPORT INFORMATION
  Report Type: Spontaneous
  Country: US (occurrence: US)
  Receive Date: 20190703
  Receipt Date: 20190703
  Transmission Date: 20191004
  Serious: Yes (Hospitalization, Disabling)
  Sender: FDA-Public Use
  Company Number: None

PATIENT
  Age: 64 Year
  Sex: Female

DRUGS (2)
  1. AVASTIN [Suspect]
     Active Substance: BEVACIZUMAB
     Indication: DIABETIC EYE DISEASE
     Dosage: ?          QUANTITY:1 SYRINGE;OTHER FREQUENCY:MONTHLY;?
     Route: 047
     Dates: start: 20190701, end: 20190701
  2. INSULIN [Concomitant]
     Active Substance: INSULIN NOS

REACTIONS (1)
  - Eye injury [None]

NARRATIVE: CASE EVENT DATE: 20190701
